FAERS Safety Report 10237355 (Version 1)
Quarter: 2014Q2

REPORT INFORMATION
  Report Type: Report from Study
  Country: FR (occurrence: FR)
  Receive Date: 20140613
  Receipt Date: 20140613
  Transmission Date: 20141212
  Serious: Yes (Death, Other)
  Sender: FDA-Public Use
  Company Number: PHHO2014FR008446

PATIENT
  Sex: 0

DRUGS (2)
  1. NEORAL [Suspect]
     Indication: RENAL TRANSPLANT
     Dosage: 120 MG, QD
     Route: 002
     Dates: start: 20110514
  2. CELLCEPT//MYCOPHENOLATE MOFETIL [Suspect]
     Indication: TRANSPLANT REJECTION
     Dosage: 1 G, QD
     Route: 002
     Dates: start: 20110513

REACTIONS (2)
  - Cerebrovascular accident [Fatal]
  - Kidney transplant rejection [Recovered/Resolved]
